FAERS Safety Report 25834663 (Version 1)
Quarter: 2025Q3

REPORT INFORMATION
  Report Type: Spontaneous
  Country: CN (occurrence: CN)
  Receive Date: 20250923
  Receipt Date: 20250923
  Transmission Date: 20251020
  Serious: Yes (Hospitalization)
  Sender: ALEXION PHARMACEUTICALS
  Company Number: CN-ASTRAZENECA-202509CHN017489CN

PATIENT
  Age: 46 Year
  Sex: Female
  Weight: 54.5 kg

DRUGS (1)
  1. TAGRISSO [Suspect]
     Active Substance: OSIMERTINIB
     Indication: Adenocarcinoma
     Dosage: 80 MILLIGRAM, QD
     Dates: start: 20250703, end: 20250801

REACTIONS (4)
  - Hepatic function abnormal [Recovered/Resolved]
  - Asthenia [Unknown]
  - Decreased appetite [Unknown]
  - Hypophagia [Unknown]

NARRATIVE: CASE EVENT DATE: 20250801
